FAERS Safety Report 10771346 (Version 1)
Quarter: 2015Q1

REPORT INFORMATION
  Report Type: Spontaneous
  Country: IT (occurrence: IT)
  Receive Date: 20150206
  Receipt Date: 20150206
  Transmission Date: 20150721
  Serious: Yes (Hospitalization)
  Sender: FDA-Public Use
  Company Number: IT-FRI-1000074238

PATIENT
  Age: 76 Year
  Sex: Female

DRUGS (3)
  1. SALUTEC [Concomitant]
     Active Substance: HYDROCHLOROTHIAZIDE\RAMIPRIL
     Indication: ESSENTIAL HYPERTENSION
     Dosage: 30 MG
     Route: 048
     Dates: start: 20101027
  2. NORMIX [Concomitant]
     Active Substance: RIFAXIMIN
  3. NEBIVOLOL [Suspect]
     Active Substance: NEBIVOLOL
     Indication: ESSENTIAL HYPERTENSION
     Dosage: 2.5 MG
     Route: 048
     Dates: start: 20101220, end: 20130522

REACTIONS (2)
  - Presyncope [Recovered/Resolved]
  - Loss of consciousness [Recovered/Resolved]

NARRATIVE: CASE EVENT DATE: 20130522
